FAERS Safety Report 7331718-9 (Version None)
Quarter: 2011Q1

REPORT INFORMATION
  Report Type: 
  Country: None (occurrence: None)
  Receive Date: 20110304
  Receipt Date: 20110221
  Transmission Date: 20110831
  Serious: Yes (Hospitalization)
  Sender: FDA-Public Use
  Company Number: PHHY2011FR14908

PATIENT
  Age: 89 Year
  Sex: Male

DRUGS (1)
  1. ACLASTA [Suspect]
     Indication: OSTEOPOROSIS
     Dosage: UNK
     Dates: start: 20091001

REACTIONS (3)
  - RENAL FAILURE [None]
  - GENERAL PHYSICAL HEALTH DETERIORATION [None]
  - CARDIAC FAILURE [None]
